FAERS Safety Report 12716896 (Version 1)
Quarter: 2016Q3

REPORT INFORMATION
  Report Type: Spontaneous
  Country: FR (occurrence: FR)
  Receive Date: 20160906
  Receipt Date: 20160906
  Transmission Date: 20161109
  Serious: Yes (Hospitalization)
  Sender: FDA-Public Use
  Company Number: FR-PFIZER INC-2016403646

PATIENT
  Age: 11 Year
  Sex: Male
  Weight: 48 kg

DRUGS (9)
  1. CALCIUM VITAMIN D [Concomitant]
     Active Substance: CALCIUM\VITAMIN D
     Dosage: UNK
     Dates: start: 20160704
  2. BACTRIM [Suspect]
     Active Substance: SULFAMETHOXAZOLE\TRIMETHOPRIM
     Indication: INFECTION PROPHYLAXIS
     Dosage: 1 DF, 3X/ WEEK
     Route: 048
     Dates: start: 20160704, end: 20160803
  3. DOLIPRANE [Concomitant]
     Active Substance: ACETAMINOPHEN
  4. INEXIUM /01479303/ [Suspect]
     Active Substance: ESOMEPRAZOLE
     Indication: GASTRITIS PROPHYLAXIS
     Dosage: 20 MG, 1X/DAY
     Route: 048
     Dates: start: 20160704, end: 20160805
  5. METHYLPREDNISOLONE MYLAN /00049602/ [Suspect]
     Active Substance: METHYLPREDNISOLONE SODIUM SUCCINATE
     Indication: LYMPHOMA
     Dosage: 87 MG (60 MG/M2), 1X/DAY
     Route: 042
     Dates: start: 20160704, end: 20160804
  6. VINCRISTINE SULFATE. [Suspect]
     Active Substance: VINCRISTINE SULFATE
     Indication: LYMPHOMA
     Dosage: 2 MG (1.5 MG/M2), CYCLIC
     Route: 042
     Dates: start: 20160711, end: 20160801
  7. KIDROLASE [Suspect]
     Active Substance: ASPARAGINASE
     Indication: LYMPHOMA
     Dosage: 1500 IU (1000 IU/M2), CYCLIC
     Route: 042
     Dates: start: 20160715, end: 20160802
  8. CERUBIDINE [Suspect]
     Active Substance: DAUNORUBICIN HYDROCHLORIDE
     Indication: LYMPHOMA
     Dosage: 44 MG (30 MG/M2), CYCLIC
     Route: 042
     Dates: start: 20160711, end: 20160801
  9. SPASFON /00765801/ [Concomitant]
     Active Substance: PHLOROGLUCINOL\1,3,5-TRIMETHOXYBENZENE

REACTIONS (6)
  - Gamma-glutamyltransferase increased [Recovering/Resolving]
  - Hepatomegaly [Recovering/Resolving]
  - Hepatocellular injury [Recovering/Resolving]
  - Splenomegaly [Recovering/Resolving]
  - Hepatic steatosis [Recovering/Resolving]
  - Jaundice [Recovering/Resolving]

NARRATIVE: CASE EVENT DATE: 20160718
